FAERS Safety Report 26178107 (Version 2)
Quarter: 2025Q4

REPORT INFORMATION
  Report Type: Report from Study
  Country: ZA (occurrence: ZA)
  Receive Date: 20251219
  Receipt Date: 20251226
  Transmission Date: 20260117
  Serious: Yes (Other)
  Sender: ROCHE
  Company Number: ZA-ROCHE-10000183392

PATIENT
  Sex: Male

DRUGS (2)
  1. VABYSMO [Suspect]
     Active Substance: FARICIMAB-SVOA
     Indication: Macular degeneration
     Dosage: NOT INJECTING 4 WEEKS APART?2ND INJ - 15 JANUARY 2025 (7 WEEKS)?3RD INJ -19-MAR-2025
  2. VABYSMO [Suspect]
     Active Substance: FARICIMAB-SVOA

REACTIONS (3)
  - Off label use [Unknown]
  - Optical coherence tomography abnormal [Unknown]
  - Retinal thickening [Unknown]
